FAERS Safety Report 17099476 (Version 2)
Quarter: 2019Q4

REPORT INFORMATION
  Report Type: Spontaneous
  Country: US (occurrence: US)
  Receive Date: 20191202
  Receipt Date: 20191205
  Transmission Date: 20200122
  Serious: No
  Sender: FDA-Public Use
  Company Number: US-PFIZER INC-2019515799

PATIENT
  Age: 2 Year

DRUGS (1)
  1. BICILLIN L-A [Suspect]
     Active Substance: PENICILLIN G BENZATHINE
     Indication: STREPTOCOCCAL INFECTION
     Dosage: UNK

REACTIONS (2)
  - Suspected product contamination [Unknown]
  - Abscess limb [Unknown]
